FAERS Safety Report 20603701 (Version 1)
Quarter: 2022Q1

REPORT INFORMATION
  Report Type: Spontaneous
  Country: US (occurrence: None)
  Receive Date: 20220316
  Receipt Date: 20220316
  Transmission Date: 20220424
  Serious: No
  Sender: FDA-Public Use
  Company Number: None

PATIENT
  Age: 73 Year
  Sex: Male
  Weight: 84 kg

DRUGS (1)
  1. CASIRIVIMAB\IMDEVIMAB [Suspect]
     Active Substance: CASIRIVIMAB\IMDEVIMAB
     Indication: COVID-19
     Dosage: G00 MG ONCE IV?
     Route: 042
     Dates: start: 20220104, end: 20220104

REACTIONS (2)
  - Pain in extremity [None]
  - Myalgia [None]

NARRATIVE: CASE EVENT DATE: 20220107
